FAERS Safety Report 4893341-5 (Version None)
Quarter: 2006Q1

REPORT INFORMATION
  Report Type: 
  Country: None (occurrence: None)
  Receive Date: 20060127
  Receipt Date: 20060116
  Transmission Date: 20060701
  Serious: Yes (Death, Hospitalization)
  Sender: FDA-Public Use
  Company Number: GR-ABBOTT-06P-066-0322391-00

PATIENT
  Sex: Female
  Weight: 50 kg

DRUGS (4)
  1. KALETRA [Suspect]
     Indication: HIV INFECTION
     Route: 048
     Dates: start: 20050131
  2. LAMIVUDINE + ZIDOVUDINE [Concomitant]
     Indication: HIV INFECTION
     Route: 048
     Dates: start: 20050131
  3. CEFTAZIDIME PENTAHYDRATE [Concomitant]
     Indication: COLITIS ISCHAEMIC
     Dosage: VIAL
     Route: 042
     Dates: start: 20051212, end: 20060109
  4. FLAGYL [Concomitant]
     Indication: COLITIS ISCHAEMIC
     Dosage: VIAL
     Route: 042
     Dates: start: 20051212, end: 20060109

REACTIONS (1)
  - COLITIS ISCHAEMIC [None]
